FAERS Safety Report 5166389-3 (Version None)
Quarter: 2006Q4

REPORT INFORMATION
  Report Type: 
  Country: None (occurrence: None)
  Receive Date: 20061129
  Receipt Date: 20061027
  Transmission Date: 20070319
  Serious: Yes (Hospitalization)
  Sender: FDA-Public Use
  Company Number: 0611-802

PATIENT
  Age: 6 Hour
  Sex: Male
  Weight: 1.5 kg

DRUGS (3)
  1. CUROSURF [Suspect]
     Indication: NEONATAL RESPIRATORY DISTRESS SYNDROME
     Dosage: 240MG-INTRATRACHEAL - TWICE
     Dates: start: 20060718
  2. BENZYLPENICILLIN (BENZYLPENICILLIN) [Concomitant]
  3. MORPHINE [Concomitant]

REACTIONS (1)
  - CARDIO-RESPIRATORY ARREST NEONATAL [None]
